FAERS Safety Report 4907171-9 (Version None)
Quarter: 2006Q1

REPORT INFORMATION
  Report Type: 
  Country: None (occurrence: None)
  Receive Date: 20060206
  Receipt Date: 20060123
  Transmission Date: 20060701
  Serious: No
  Sender: FDA-Public Use
  Company Number: 33704

PATIENT
  Age: 1 Month
  Sex: Male

DRUGS (6)
  1. MYDRIACYL [Suspect]
     Indication: FUNDOSCOPY
     Dosage: 6 GTTS OU
     Route: 047
     Dates: start: 20060103, end: 20060103
  2. MYDRIACYL [Suspect]
     Indication: FUNDOSCOPY
     Dosage: 6 GTTS OU
     Route: 047
  3. MYDRIACYL [Suspect]
     Indication: FUNDOSCOPY
     Dosage: 6 GTTS OU
     Route: 047
  4. PROCAINE HCL [Concomitant]
  5. ATROPINE [Suspect]
     Indication: FUNDOSCOPY
     Dosage: 2 GTTS OU, OPHT
     Route: 047
     Dates: start: 20060103, end: 20060103
  6. MYDFRIN (PHENYLEPHRINE HCL) [Suspect]
     Indication: FUNDOSCOPY
     Dosage: 1 GTT OU ONCE, OPHT
     Route: 047
     Dates: start: 20060103, end: 20060103

REACTIONS (5)
  - CONVULSION [None]
  - FLATULENCE [None]
  - OVERDOSE [None]
  - OXYGEN SATURATION DECREASED [None]
  - TACHYCARDIA [None]
